FAERS Safety Report 18651798 (Version 1)
Quarter: 2020Q4

REPORT INFORMATION
  Report Type: Spontaneous
  Country: ES (occurrence: ES)
  Receive Date: 20201223
  Receipt Date: 20201223
  Transmission Date: 20210114
  Serious: Yes (Hospitalization, Other)
  Sender: FDA-Public Use
  Company Number: ES-INSMED, INC.-E2B_00000408

PATIENT
  Age: 47 Year
  Sex: Female

DRUGS (5)
  1. AMIKACIN. [Suspect]
     Active Substance: AMIKACIN
     Indication: PULMONARY NOCARDIOSIS
  2. LINEZOLID. [Suspect]
     Active Substance: LINEZOLID
     Dosage: 600 MILLIGRAM DAILY; RESTARTED AT REDUCED DOSE
     Route: 048
     Dates: start: 20180724
  3. TRIMETHOPRIM SULFAMETHOXAZOLE [Suspect]
     Active Substance: SULFAMETHOXAZOLE\TRIMETHOPRIM
     Indication: PULMONARY NOCARDIOSIS
     Dates: start: 201803, end: 20180421
  4. LINEZOLID. [Suspect]
     Active Substance: LINEZOLID
     Indication: PULMONARY NOCARDIOSIS
     Dosage: 1200 MILLIGRAM DAILY;
     Route: 048
     Dates: end: 20180615
  5. IMIPENEM [Concomitant]
     Active Substance: IMIPENEM
     Indication: PULMONARY NOCARDIOSIS
     Route: 042
     Dates: end: 20180823

REACTIONS (6)
  - Neutropenia [Recovered/Resolved]
  - Blood disorder [Unknown]
  - Hepatotoxicity [Unknown]
  - Thrombocytopenia [Recovered/Resolved]
  - Anaemia [Recovered/Resolved]
  - Rash [Unknown]

NARRATIVE: CASE EVENT DATE: 2018
